FAERS Safety Report 7352026-6 (Version None)
Quarter: 2011Q1

REPORT INFORMATION
  Report Type: 
  Country: None (occurrence: None)
  Receive Date: 20110309
  Receipt Date: 20110309
  Transmission Date: 20110831
  Serious: Yes (Other)
  Sender: FDA-Public Use
  Company Number: None

PATIENT
  Sex: Female
  Weight: 50 kg

DRUGS (1)
  1. AVELOX [Suspect]
     Indication: PNEUMONIA
     Dosage: 400 MG ONCE DAILY ORAL
     Route: 048
     Dates: start: 20110227, end: 20110227

REACTIONS (8)
  - HYPERHIDROSIS [None]
  - LOSS OF CONSCIOUSNESS [None]
  - FEELING HOT [None]
  - VOMITING [None]
  - COLD SWEAT [None]
  - NAUSEA [None]
  - FEELING ABNORMAL [None]
  - REFUSAL OF TREATMENT BY PATIENT [None]
